FAERS Safety Report 25524253 (Version 2)
Quarter: 2025Q3

REPORT INFORMATION
  Report Type: Spontaneous
  Country: JP (occurrence: JP)
  Receive Date: 20250707
  Receipt Date: 20250707
  Transmission Date: 20251021
  Serious: Yes (Life-Threatening, Hospitalization, Other)
  Sender: PFIZER
  Company Number: JP-MLMSERVICE-20250624-PI553501-00270-1

PATIENT
  Age: 4 Decade
  Sex: Male

DRUGS (4)
  1. METHYLPREDNISOLONE SODIUM SUCCINATE [Suspect]
     Active Substance: METHYLPREDNISOLONE SODIUM SUCCINATE
     Indication: Granulomatosis with polyangiitis
     Dosage: 1000 MG, 1X/DAY (HIGH-DOSE)
  2. RITUXIMAB [Suspect]
     Active Substance: RITUXIMAB
     Indication: Granulomatosis with polyangiitis
     Dosage: 375 MG/M2, WEEKLY FOR FOUR DOSES
  3. PREDNISOLONE [Suspect]
     Active Substance: PREDNISOLONE
     Indication: Granulomatosis with polyangiitis
     Dosage: 45 MG, 1X/DAY
     Route: 048
  4. MIZORIBINE [Suspect]
     Active Substance: MIZORIBINE
     Indication: Granulomatosis with polyangiitis

REACTIONS (1)
  - Small intestinal haemorrhage [Recovered/Resolved]
